FAERS Safety Report 5266787-3 (Version None)
Quarter: 2007Q1

REPORT INFORMATION
  Report Type: 
  Country: None (occurrence: None)
  Receive Date: 20070312
  Receipt Date: 20070228
  Transmission Date: 20070707
  Serious: Yes (Other)
  Sender: FDA-Public Use
  Company Number: 237466

PATIENT
  Age: 15 Year
  Sex: Male
  Weight: 49 kg

DRUGS (1)
  1. NUTROPIN [Suspect]
     Indication: RENAL FAILURE CHRONIC
     Dosage: 4.9 MG, SUBCUTANEOUS
     Route: 058
     Dates: start: 20040201

REACTIONS (1)
  - CHEST PAIN [None]
